FAERS Safety Report 7998726-6 (Version None)
Quarter: 2011Q4

REPORT INFORMATION
  Report Type: 
  Country: None (occurrence: None)
  Receive Date: 20111221
  Receipt Date: 20111219
  Transmission Date: 20120403
  Serious: Yes (Hospitalization)
  Sender: FDA-Public Use
  Company Number: JP-BAYER-2011-047277

PATIENT
  Age: 67 Year
  Sex: Male
  Weight: 64 kg

DRUGS (14)
  1. ALLOPURINOL [Concomitant]
     Dosage: DAILY DOSE 100 MG
     Route: 048
  2. CAPTORIL R [Concomitant]
     Dosage: DAILY DOSE 37.5 MG
     Route: 048
  3. ATARAX [Concomitant]
     Dosage: DAILY DOSE 25 MG
     Route: 042
     Dates: start: 20090903, end: 20090903
  4. LIPIODOL ULTRA-FLUIDE [Concomitant]
     Indication: THERAPEUTIC EMBOLISATION
     Dosage: DAILY DOSE 5 ML
     Route: 013
     Dates: start: 20100126, end: 20100126
  5. SORAFENIB (RAF KINASE INHIBITOR) [Suspect]
     Dosage: 200 MG, QD
     Route: 048
     Dates: start: 20091124, end: 20091217
  6. SORAFENIB (RAF KINASE INHIBITOR) [Suspect]
     Dosage: 600 MG, QD
     Route: 048
     Dates: start: 20100302, end: 20100412
  7. AMLODIPINE [Concomitant]
     Dosage: DAILY DOSE 5 MG
     Route: 048
  8. EPADEL [Concomitant]
     Dosage: DAILY DOSE 1200 MG
     Route: 048
  9. SORAFENIB (RAF KINASE INHIBITOR) [Suspect]
     Indication: HEPATIC NEOPLASM MALIGNANT
     Dosage: 800 MG, QD
     Route: 048
     Dates: start: 20090805, end: 20090822
  10. BEZALIP [Concomitant]
     Dosage: DAILY DOSE 400 MG
     Route: 048
  11. SORAFENIB (RAF KINASE INHIBITOR) [Suspect]
     Dosage: 800 MG, QD
     Route: 048
     Dates: start: 20100413, end: 20100426
  12. EPIRUBICIN HYDROCHLORIDE [Concomitant]
     Indication: THERAPEUTIC EMBOLISATION
     Dosage: DAILY DOSE 40 MG
     Route: 013
     Dates: start: 20100126, end: 20100126
  13. SORAFENIB (RAF KINASE INHIBITOR) [Suspect]
     Dosage: 400 MG, QD
     Route: 048
     Dates: start: 20100203, end: 20100301
  14. SORAFENIB (RAF KINASE INHIBITOR) [Suspect]
     Dosage: 600 MG, QD
     Route: 048
     Dates: start: 20100427, end: 20100629

REACTIONS (19)
  - BLOOD LACTATE DEHYDROGENASE INCREASED [None]
  - WHITE BLOOD CELL COUNT INCREASED [None]
  - PALMAR-PLANTAR ERYTHRODYSAESTHESIA SYNDROME [None]
  - WHITE BLOOD CELL COUNT DECREASED [None]
  - DECREASED APPETITE [None]
  - EOSINOPHIL COUNT INCREASED [None]
  - DEHYDRATION [None]
  - BLOOD PRESSURE DECREASED [None]
  - ANAEMIA [None]
  - DIZZINESS [None]
  - DIARRHOEA [None]
  - C-REACTIVE PROTEIN INCREASED [None]
  - ASPARTATE AMINOTRANSFERASE INCREASED [None]
  - GAIT DISTURBANCE [None]
  - HYPOALBUMINAEMIA [None]
  - PLATELET COUNT DECREASED [None]
  - ALANINE AMINOTRANSFERASE INCREASED [None]
  - DIVERTICULITIS [None]
  - CONSTIPATION [None]
